FAERS Safety Report 8918546 (Version 5)
Quarter: 2016Q3

REPORT INFORMATION
  Report Type: Spontaneous
  Country: US (occurrence: US)
  Receive Date: 20121120
  Receipt Date: 20160914
  Transmission Date: 20161109
  Serious: No
  Sender: FDA-Public Use
  Company Number: US-ASTRAZENECA-2012SE18922

PATIENT
  Age: 751 Month
  Sex: Male
  Weight: 90.7 kg

DRUGS (4)
  1. AMOXICILLIN. [Concomitant]
     Active Substance: AMOXICILLIN
     Indication: BRONCHITIS
     Route: 048
     Dates: start: 201502
  2. CRESTOR [Suspect]
     Active Substance: ROSUVASTATIN CALCIUM
     Indication: CARDIAC DISORDER
     Route: 048
     Dates: start: 2006
  3. CRESTOR [Suspect]
     Active Substance: ROSUVASTATIN CALCIUM
     Indication: BLOOD CHOLESTEROL
     Route: 048
     Dates: start: 2006
  4. NEXIUM [Suspect]
     Active Substance: ESOMEPRAZOLE MAGNESIUM
     Indication: GASTROOESOPHAGEAL REFLUX DISEASE
     Route: 048

REACTIONS (9)
  - Influenza [Unknown]
  - Nasopharyngitis [Unknown]
  - Chills [Unknown]
  - Rhinorrhoea [Unknown]
  - Bronchitis [Unknown]
  - Concussion [Unknown]
  - Intentional product use issue [Unknown]
  - Pyrexia [Unknown]
  - Memory impairment [Unknown]

NARRATIVE: CASE EVENT DATE: 201502
